FAERS Safety Report 17880763 (Version 1)
Quarter: 2020Q2

REPORT INFORMATION
  Report Type: Spontaneous
  Country: US (occurrence: US)
  Receive Date: 20200610
  Receipt Date: 20200610
  Transmission Date: 20200714
  Serious: No
  Sender: FDA-Public Use
  Company Number: US-009507513-2005USA006210

PATIENT
  Sex: Female

DRUGS (1)
  1. COZAAR [Suspect]
     Active Substance: LOSARTAN POTASSIUM
     Dosage: UNK
     Route: 048
     Dates: start: 2000

REACTIONS (5)
  - Ill-defined disorder [Unknown]
  - Nasal congestion [Unknown]
  - Anosmia [Unknown]
  - Anxiety [Unknown]
  - Ageusia [Unknown]
